FAERS Safety Report 5635377-2 (Version None)
Quarter: 2008Q1

REPORT INFORMATION
  Report Type: 
  Country: None (occurrence: None)
  Receive Date: 20080222
  Receipt Date: 20080214
  Transmission Date: 20080703
  Serious: Yes (Life-Threatening, Hospitalization, Other)
  Sender: FDA-Public Use
  Company Number: GB-PFIZER INC-2008011076

PATIENT
  Sex: Female

DRUGS (6)
  1. LINEZOLID [Suspect]
     Indication: STAPHYLOCOCCAL INFECTION
     Route: 048
     Dates: start: 20080124, end: 20080127
  2. SIMVASTATIN [Concomitant]
     Dosage: DAILY DOSE:40MG-FREQ:AT NIGHT
     Route: 048
  3. GLICLAZIDE [Concomitant]
     Dosage: DAILY DOSE:160MG
     Route: 048
  4. DILTIAZEM [Concomitant]
     Dosage: DAILY DOSE:200MG
     Route: 048
  5. ALENDRONIC ACID [Concomitant]
     Route: 048
  6. FLUOXETINE [Concomitant]
     Dosage: DAILY DOSE:20MG
     Route: 048

REACTIONS (1)
  - ACUTE HEPATIC FAILURE [None]
